FAERS Safety Report 8400414-9 (Version None)
Quarter: 2012Q2

REPORT INFORMATION
  Report Type: 
  Country: None (occurrence: None)
  Receive Date: 20120531
  Receipt Date: 20120522
  Transmission Date: 20120825
  Serious: Yes (Other)
  Sender: FDA-Public Use
  Company Number: US-US-EMD SERONO, INC.-7098171

PATIENT
  Sex: Female

DRUGS (5)
  1. REBIF [Suspect]
     Indication: MULTIPLE SCLEROSIS
     Route: 058
     Dates: start: 20100525, end: 20111001
  2. NUVIGIL [Concomitant]
     Indication: PRODUCT USED FOR UNKNOWN INDICATION
     Route: 048
  3. REBIF [Suspect]
     Route: 058
     Dates: start: 20111011
  4. IBUPROFEN [Concomitant]
     Indication: PREMEDICATION
  5. AMPYRA [Concomitant]
     Indication: BALANCE DISORDER
     Route: 048

REACTIONS (7)
  - BLADDER DYSFUNCTION [None]
  - ROAD TRAFFIC ACCIDENT [None]
  - LIMB INJURY [None]
  - TENDON INJURY [None]
  - NAUSEA [None]
  - HEADACHE [None]
  - HAND FRACTURE [None]
